FAERS Safety Report 10020923 (Version 1)
Quarter: 2014Q1

REPORT INFORMATION
  Report Type: Spontaneous
  Country: US (occurrence: None)
  Receive Date: 20140318
  Receipt Date: 20140318
  Transmission Date: 20141002
  Serious: No
  Sender: FDA-Public Use
  Company Number: None

PATIENT
  Sex: 0

DRUGS (4)
  1. XTANDI (ENZALUTAMIDE) [Suspect]
     Indication: PROSTATE CANCER METASTATIC
     Dates: start: 20140205, end: 20140223
  2. RESERVATOL [Concomitant]
  3. GLUCOSAMINE CHONDROITIN [Concomitant]
  4. SALMON OIL LEAP [Concomitant]

REACTIONS (7)
  - Muscle spasms [None]
  - Neuropathy peripheral [None]
  - Feeling cold [None]
  - Hypoaesthesia [None]
  - Paraesthesia [None]
  - Anxiety [None]
  - Decreased appetite [None]
